FAERS Safety Report 22053776 (Version 1)
Quarter: 2023Q1

REPORT INFORMATION
  Report Type: Spontaneous
  Country: AR (occurrence: AR)
  Receive Date: 20230302
  Receipt Date: 20230302
  Transmission Date: 20230418
  Serious: Yes (Death, Hospitalization, Other)
  Sender: FDA-Public Use
  Company Number: AR-SA-2023SA067195

PATIENT
  Age: 77 Year
  Sex: Female

DRUGS (2)
  1. INSULIN GLARGINE [Suspect]
     Active Substance: INSULIN GLARGINE
     Indication: Type 2 diabetes mellitus
     Dosage: 50 IU, QD
     Route: 058
  2. INSULIN ASPART [Suspect]
     Active Substance: INSULIN ASPART
     Indication: Type 2 diabetes mellitus
     Dosage: UNK
     Route: 040

REACTIONS (14)
  - Skin bacterial infection [Fatal]
  - Skin necrosis [Fatal]
  - Poor personal hygiene [Fatal]
  - Multiple use of single-use product [Fatal]
  - Staphylococcal infection [Fatal]
  - Serratia infection [Fatal]
  - Citrobacter infection [Fatal]
  - Klebsiella infection [Fatal]
  - Escherichia infection [Fatal]
  - Fusarium infection [Fatal]
  - Product contamination [Fatal]
  - Sepsis [Fatal]
  - Disease progression [Fatal]
  - Candida infection [Fatal]

NARRATIVE: CASE EVENT DATE: 20210101
